FAERS Safety Report 5683335-4 (Version None)
Quarter: 2008Q1

REPORT INFORMATION
  Report Type: 
  Country: None (occurrence: None)
  Receive Date: 20080326
  Receipt Date: 20080314
  Transmission Date: 20080703
  Serious: Yes (Hospitalization)
  Sender: FDA-Public Use
  Company Number: 232449J08USA

PATIENT
  Age: 53 Year
  Sex: Female

DRUGS (9)
  1. REBIF [Suspect]
     Indication: MULTIPLE SCLEROSIS
     Dosage: 44 MCG, 3 IN 1 WEEKS, SUBCUTANEOUS
     Route: 058
     Dates: start: 20080107
  2. LEVOTHYROXINE SODIUM [Concomitant]
  3. HYDROCORTISONE [Concomitant]
  4. PREMARIN [Concomitant]
  5. TEMAZEPAM [Concomitant]
  6. XANAX [Concomitant]
  7. PAXIL [Concomitant]
  8. NITROGLYCERIN SPRAY (GLYCERYL TRINITRATE) [Concomitant]
  9. ELAVIL [Concomitant]

REACTIONS (13)
  - CARDIAC DISORDER [None]
  - CONDITION AGGRAVATED [None]
  - CONSTIPATION [None]
  - DEPRESSION [None]
  - DIARRHOEA [None]
  - HEADACHE [None]
  - MEMORY IMPAIRMENT [None]
  - MULTIPLE SCLEROSIS [None]
  - MUSCLE SPASMS [None]
  - NAUSEA [None]
  - SLEEP DISORDER [None]
  - TINNITUS [None]
  - VISION BLURRED [None]
